FAERS Safety Report 6769116-9 (Version None)
Quarter: 2010Q2

REPORT INFORMATION
  Report Type: 
  Country: None (occurrence: None)
  Receive Date: 20100603
  Receipt Date: 20100525
  Transmission Date: 20101027
  Serious: Yes (Life-Threatening, Hospitalization)
  Sender: FDA-Public Use
  Company Number: WAES 1005USA03082

PATIENT
  Age: 76 Year
  Sex: Male

DRUGS (14)
  1. CAP VORINOSTAT [Suspect]
     Indication: MULTIPLE MYELOMA
     Dosage: 400 MG/DAILY PO
     Route: 048
     Dates: start: 20100405, end: 20100412
  2. CAP VORINOSTAT [Suspect]
     Indication: MULTIPLE MYELOMA
     Dosage: 400 MG/DAILY PO
     Route: 048
     Dates: start: 20100508, end: 20100513
  3. BORTEZOMIB [Suspect]
     Indication: MULTIPLE MYELOMA
     Dosage: 2.07 MG/DAILY IV, 1.6 MG/DAILY IV
     Route: 042
     Dates: start: 20100405, end: 20100405
  4. BORTEZOMIB [Suspect]
     Indication: MULTIPLE MYELOMA
     Dosage: 2.07 MG/DAILY IV, 1.6 MG/DAILY IV
     Route: 042
     Dates: start: 20100408, end: 20100408
  5. BORTEZOMIB [Suspect]
     Indication: MULTIPLE MYELOMA
     Dosage: 2.07 MG/DAILY IV, 1.6 MG/DAILY IV
     Route: 042
     Dates: start: 20100508, end: 20100508
  6. BORTEZOMIB [Suspect]
     Indication: MULTIPLE MYELOMA
     Dosage: 2.07 MG/DAILY IV, 1.6 MG/DAILY IV
     Route: 042
     Dates: start: 20100511, end: 20100511
  7. ARTIST [Concomitant]
  8. HYPOCA [Concomitant]
  9. KOLANTYL [Concomitant]
  10. MEVALOTIN [Concomitant]
  11. MG OXIDE [Concomitant]
  12. NU-LOTAN [Concomitant]
  13. ULCERLMIN [Concomitant]
  14. ZYLORIC [Concomitant]

REACTIONS (16)
  - ALTERED STATE OF CONSCIOUSNESS [None]
  - ANAEMIA [None]
  - BLOOD CREATINE PHOSPHOKINASE DECREASED [None]
  - DECREASED APPETITE [None]
  - DEHYDRATION [None]
  - DISSEMINATED INTRAVASCULAR COAGULATION [None]
  - DYSARTHRIA [None]
  - ESCHERICHIA SEPSIS [None]
  - GASTROINTESTINAL TOXICITY [None]
  - HAEMORRHAGE [None]
  - OLIGURIA [None]
  - OSTEOPOROSIS [None]
  - PLEURAL EFFUSION [None]
  - PYELONEPHRITIS [None]
  - SOMNOLENCE [None]
  - THROMBOCYTOPENIA [None]
